FAERS Safety Report 17252451 (Version 1)
Quarter: 2020Q1

REPORT INFORMATION
  Report Type: Spontaneous
  Country: US (occurrence: US)
  Receive Date: 20200109
  Receipt Date: 20200109
  Transmission Date: 20200409
  Serious: No
  Sender: FDA-Public Use
  Company Number: US-PFIZER INC-2020005625

PATIENT

DRUGS (1)
  1. XANAX [Suspect]
     Active Substance: ALPRAZOLAM
     Indication: ANXIETY
     Dosage: UNK, AS NEEDED [WHICH TYPICALLY IS NOT VERY OFTEN]

REACTIONS (3)
  - Pre-existing condition improved [Unknown]
  - Off label use [Unknown]
  - Therapeutic response unexpected [Unknown]
